FAERS Safety Report 6630516-9 (Version None)
Quarter: 2010Q1

REPORT INFORMATION
  Report Type: 
  Country: None (occurrence: None)
  Receive Date: 20100311
  Receipt Date: 20090625
  Transmission Date: 20100710
  Serious: No
  Sender: FDA-Public Use
  Company Number: US-BIOGENIDEC-2009BI019717

PATIENT
  Sex: Female

DRUGS (1)
  1. AVONEX [Suspect]
     Route: 030
     Dates: start: 20070301, end: 20070501

REACTIONS (4)
  - ABASIA [None]
  - ARTHRALGIA [None]
  - DEPRESSION [None]
  - PAIN IN EXTREMITY [None]
